FAERS Safety Report 8017499-4 (Version None)
Quarter: 2011Q4

REPORT INFORMATION
  Report Type: 
  Country: None (occurrence: None)
  Receive Date: 20111228
  Receipt Date: 20111228
  Transmission Date: 20120403
  Serious: Yes (Disabling, Other)
  Sender: FDA-Public Use
  Company Number: None

PATIENT
  Age: 56 Year
  Sex: Female
  Weight: 58.0604 kg

DRUGS (1)
  1. VALACYCLOVIR [Suspect]
     Indication: GENITAL HERPES
     Dosage: 500 MG 1 PILL EVERY DAY BY MOUTH
     Route: 048
     Dates: start: 20111205, end: 20111213

REACTIONS (10)
  - ARTHRALGIA [None]
  - PELVIC PAIN [None]
  - CHROMATURIA [None]
  - DYSSTASIA [None]
  - BACK PAIN [None]
  - PAIN [None]
  - LOSS OF CONTROL OF LEGS [None]
  - HEADACHE [None]
  - ABASIA [None]
  - MUSCULOSKELETAL PAIN [None]
